APPROVED DRUG PRODUCT: CHILDREN'S CETIRIZINE HYDROCHLORIDE HIVES RELIEF
Active Ingredient: CETIRIZINE HYDROCHLORIDE
Strength: 5MG/5ML
Dosage Form/Route: SOLUTION;ORAL
Application: A090182 | Product #001
Applicant: TARO PHARMACEUTICAL INDUSTRIES LTD
Approved: Apr 22, 2008 | RLD: No | RS: No | Type: OTC